FAERS Safety Report 6328672-5 (Version None)
Quarter: 2009Q3

REPORT INFORMATION
  Report Type: 
  Country: None (occurrence: None)
  Receive Date: 20090824
  Receipt Date: 20090824
  Transmission Date: 20100115
  Serious: Yes (Hospitalization)
  Sender: FDA-Public Use
  Company Number: None

PATIENT
  Age: 74 Year
  Sex: Female
  Weight: 70.5 kg

DRUGS (4)
  1. DOCETAXEL [Suspect]
     Indication: NON-SMALL CELL LUNG CANCER
     Dosage: 60MG/M2 IV EVERY 3 WKS  21-19 DAYS ONLY
     Route: 042
     Dates: start: 20090526
  2. DOCETAXEL [Suspect]
     Indication: NON-SMALL CELL LUNG CANCER
     Dosage: 60MG/M2 IV EVERY 3 WKS  21-19 DAYS ONLY
     Route: 042
     Dates: start: 20090615
  3. RAD001 [Suspect]
     Indication: NON-SMALL CELL LUNG CANCER
     Dosage: 5MG ONCE DAILY BY MOUTH
     Route: 048
     Dates: start: 20090526
  4. RAD001 [Suspect]
     Indication: NON-SMALL CELL LUNG CANCER
     Dosage: 5MG ONCE DAILY BY MOUTH
     Route: 048
     Dates: start: 20090615

REACTIONS (1)
  - PULMONARY EMBOLISM [None]
